FAERS Safety Report 13373580 (Version 2)
Quarter: 2017Q1

REPORT INFORMATION
  Report Type: Spontaneous
  Country: GB (occurrence: GB)
  Receive Date: 20170327
  Receipt Date: 20170330
  Transmission Date: 20170429
  Serious: Yes (Other)
  Sender: FDA-Public Use
  Company Number: GB-PFIZER INC-2017121424

PATIENT
  Sex: Male

DRUGS (2)
  1. MISOPROSTOL. [Suspect]
     Active Substance: MISOPROSTOL
     Indication: ABORTION INDUCED
     Dosage: UNK
     Route: 064
     Dates: start: 200911, end: 200911
  2. MIFEGYNE [Suspect]
     Active Substance: MIFEPRISTONE
     Indication: ABORTION INDUCED
     Dosage: 200 MG, SINGLE
     Route: 064
     Dates: start: 200911, end: 200911

REACTIONS (3)
  - Foetal monitoring abnormal [Unknown]
  - Maternal exposure during pregnancy [Unknown]
  - Apgar score low [Unknown]

NARRATIVE: CASE EVENT DATE: 200911
